FAERS Safety Report 20336722 (Version 1)
Quarter: 2022Q1

REPORT INFORMATION
  Report Type: Spontaneous
  Country: US (occurrence: US)
  Receive Date: 20220114
  Receipt Date: 20220114
  Transmission Date: 20220424
  Serious: No
  Sender: FDA-Public Use
  Company Number: US-PFIZER INC-202200036536

PATIENT
  Age: 71 Year
  Sex: Female
  Weight: 86.18 kg

DRUGS (2)
  1. GABAPENTIN [Suspect]
     Active Substance: GABAPENTIN
     Indication: Pain in extremity
     Dosage: 100 MG, 3X/DAY
     Route: 048
     Dates: start: 202201, end: 202201
  2. GABAPENTIN [Suspect]
     Active Substance: GABAPENTIN
     Dosage: 100MG IN THE MORNING, 200 MG IN THE AFTERNOON, 100MG IN THE EVENING
     Route: 048
     Dates: start: 202201

REACTIONS (1)
  - Headache [Unknown]

NARRATIVE: CASE EVENT DATE: 20220108
